FAERS Safety Report 7620452-3 (Version None)
Quarter: 2011Q3

REPORT INFORMATION
  Report Type: 
  Country: None (occurrence: None)
  Receive Date: 20110719
  Receipt Date: 20110715
  Transmission Date: 20111222
  Serious: Yes (Death, Hospitalization, Other)
  Sender: FDA-Public Use
  Company Number: PHHY2009JP28215

PATIENT
  Age: 55 Year
  Sex: Female

DRUGS (5)
  1. SIMULECT [Suspect]
     Indication: RENAL TRANSPLANT
     Dosage: 20 MG, UNK
  2. NEORAL [Suspect]
     Indication: RENAL TRANSPLANT
  3. CELLCEPT [Concomitant]
     Indication: RENAL TRANSPLANT
  4. TACROLIMUS [Concomitant]
     Indication: RENAL TRANSPLANT
  5. STEROIDS NOS [Concomitant]
     Indication: RENAL TRANSPLANT

REACTIONS (14)
  - KIDNEY TRANSPLANT REJECTION [None]
  - HEPATITIS C [None]
  - HEPATIC FAILURE [None]
  - SEPSIS [None]
  - HEPATIC FUNCTION ABNORMAL [None]
  - NEPHROPATHY TOXIC [None]
  - ASCITES [None]
  - WOUND INFECTION [None]
  - RENAL FAILURE [None]
  - GENERAL PHYSICAL HEALTH DETERIORATION [None]
  - SEROCONVERSION TEST POSITIVE [None]
  - BLOOD CREATININE INCREASED [None]
  - URINE OUTPUT DECREASED [None]
  - PYREXIA [None]
